FAERS Safety Report 9165616 (Version 1)
Quarter: 2013Q1

REPORT INFORMATION
  Report Type: Spontaneous
  Country: ES (occurrence: None)
  Receive Date: 20130301
  Receipt Date: 20130301
  Transmission Date: 20140127
  Serious: Yes (Hospitalization)
  Sender: FDA-Public Use
  Company Number: A1014047A

PATIENT
  Age: 49 Year
  Sex: Female

DRUGS (5)
  1. LAMOTRIGINE (FORMULATION UNKNOWN) (GENERIC)LAMOTRIGINE) [Suspect]
     Indication: MAJOR DEPRESSION
  2. VENLAFAXINE HYDROCHLORIDE CAPSULES MODIFIED RELEASE (GENERIC)(VENLAFAXINE HYDROCHLORIDE)? [Suspect]
     Indication: MAJOR DEPRESSION
  3. LITHIUM SALT (FORMULATION UNKNOWN) (GENERIC) LITHIUM SALT) [Suspect]
     Indication: MAJOR DEPRESSION
  4. MIRTAZAPINE (FORMULATION UNKNOWN) (MIRTAZAPINE) [Suspect]
     Indication: MAJOR DEPRESSION
  5. CLOMIPRAMINE HCL (FORMULATION UNKNOWN) (CLOMIPRAMINE HCL) [Suspect]
     Indication: MAJOR DEPRESSION

REACTIONS (7)
  - Drug ineffective [None]
  - Anxiety [None]
  - Therapeutic response decreased [None]
  - Suicidal ideation [None]
  - Hypertension [None]
  - Dry mouth [None]
  - Constipation [None]
